FAERS Safety Report 24778346 (Version 1)
Quarter: 2024Q4

REPORT INFORMATION
  Report Type: Spontaneous
  Country: ES (occurrence: ES)
  Receive Date: 20241226
  Receipt Date: 20241226
  Transmission Date: 20250115
  Serious: Yes (Life-Threatening, Hospitalization, Other)
  Sender: GLAXOSMITHKLINE
  Company Number: None

PATIENT

DRUGS (1)
  1. ALBUTEROL [Suspect]
     Active Substance: ALBUTEROL
     Indication: Product used for unknown indication
     Dosage: 0.5 ML
     Route: 042
     Dates: start: 20241205

REACTIONS (6)
  - Tachycardia [Recovered/Resolved]
  - Hypertension [Recovered/Resolved]
  - Tension headache [Recovered/Resolved]
  - Vasoconstriction [Recovered/Resolved]
  - Accidental overdose [Unknown]
  - Incorrect route of product administration [Unknown]

NARRATIVE: CASE EVENT DATE: 20241205
